FAERS Safety Report 8924361 (Version 3)
Quarter: 2013Q3

REPORT INFORMATION
  Report Type: Report from Study
  Country: FR (occurrence: FR)
  Receive Date: 20121126
  Receipt Date: 20130930
  Transmission Date: 20140515
  Serious: Yes (Other)
  Sender: FDA-Public Use
  Company Number: FR-GLAXOSMITHKLINE-B0847176A

PATIENT
  Age: 66 Year
  Sex: Female
  Weight: 60 kg

DRUGS (2)
  1. PAZOPANIB [Suspect]
     Indication: LEIOMYOSARCOMA
     Dosage: 800MG PER DAY
     Route: 048
     Dates: start: 20111025
  2. GEMCITABINE [Suspect]
     Indication: LEIOMYOSARCOMA
     Dosage: 1600MG PER DAY
     Route: 042
     Dates: start: 20111025

REACTIONS (2)
  - Neutrophil count [Recovered/Resolved]
  - White blood cell count [Recovered/Resolved]
